FAERS Safety Report 8737382 (Version 3)
Quarter: 2012Q4

REPORT INFORMATION
  Report Type: 
  Country: US (occurrence: US)
  Receive Date: 20120822
  Receipt Date: 20120926
  Transmission Date: 20130627
  Serious: Yes (Other)
  Sender: FDA-Public Use
  Company Number: US-FRI-1000037919

PATIENT
  Age: 58 None
  Sex: Female
  Weight: 90 kg

DRUGS (2)
  1. ESCITALOPRAM [Suspect]
     Indication: MAJOR DEPRESSION
     Dosage: 20 mg
     Route: 048
     Dates: start: 20120423, end: 20120523
  2. KLONOPIN [Concomitant]
     Indication: INSOMNIA
     Dosage: 2 mg at bedtime
     Route: 048
     Dates: start: 20051025

REACTIONS (7)
  - Suicidal ideation [Recovered/Resolved]
  - Suicide attempt [Recovered/Resolved]
  - Emotional distress [Recovered/Resolved]
  - Alcohol abuse [Recovered/Resolved]
  - Memory impairment [Recovered/Resolved]
  - Affect lability [Recovered/Resolved]
  - Hypersomnia [Recovered/Resolved]
